FAERS Safety Report 9275214 (Version 3)
Quarter: 2013Q2

REPORT INFORMATION
  Report Type: Spontaneous
  Country: US (occurrence: US)
  Receive Date: 20130507
  Receipt Date: 20130604
  Transmission Date: 20140414
  Serious: No
  Sender: FDA-Public Use
  Company Number: US-VERTEX PHARMACEUTICALS INC-2013-005740

PATIENT
  Age: 54 Year
  Sex: Male
  Weight: 54 kg

DRUGS (4)
  1. INCIVEK [Suspect]
     Indication: HEPATITIS C
     Dosage: 750 MG, TID
     Route: 048
     Dates: start: 20130430, end: 201305
  2. RIBAVIRIN [Suspect]
     Indication: HEPATITIS C
     Dosage: 400MG AM, 600MG PM, QD
     Route: 048
     Dates: start: 20130430, end: 201305
  3. PEGINTERFERON [Suspect]
     Indication: HEPATITIS C
     Dosage: 150 ?G, QW
     Route: 058
     Dates: start: 20130430
  4. PEGINTERFERON [Suspect]
     Dosage: 135 ?G, QW
     Route: 058
     Dates: start: 201305, end: 201305

REACTIONS (4)
  - Hordeolum [Recovered/Resolved]
  - Decreased appetite [Not Recovered/Not Resolved]
  - Platelet count decreased [Unknown]
  - Vomiting [Not Recovered/Not Resolved]
